FAERS Safety Report 10435176 (Version 1)
Quarter: 2014Q3

REPORT INFORMATION
  Report Type: Spontaneous
  Country: JP (occurrence: JP)
  Receive Date: 20140907
  Receipt Date: 20140907
  Transmission Date: 20150326
  Serious: Yes (Other)
  Sender: FDA-Public Use
  Company Number: PHHY2012JP135865

PATIENT
  Sex: Male

DRUGS (5)
  1. PREDONINE [Suspect]
     Active Substance: PREDNISOLONE\PREDNISOLONE ACETATE\PREDNISOLONE SODIUM SUCCINATE
     Dosage: 20 MG, UNK
  2. TASIGNA [Suspect]
     Active Substance: NILOTINIB
     Dosage: 200 MG, DAILY
  3. PREDONINE [Suspect]
     Active Substance: PREDNISOLONE\PREDNISOLONE ACETATE\PREDNISOLONE SODIUM SUCCINATE
     Dosage: 10 MG, UNK
  4. TASIGNA [Suspect]
     Active Substance: NILOTINIB
     Dosage: 400 MG, UNK
  5. TASIGNA [Suspect]
     Active Substance: NILOTINIB
     Dosage: 400 MG, UNK

REACTIONS (2)
  - Cardiac arrest [Unknown]
  - Cough [Unknown]
